FAERS Safety Report 5458489-5 (Version None)
Quarter: 2007Q3

REPORT INFORMATION
  Report Type: 
  Country: None (occurrence: None)
  Receive Date: 20070919
  Receipt Date: 20070326
  Transmission Date: 20080115
  Serious: Yes (Hospitalization)
  Sender: FDA-Public Use
  Company Number: US-ASTRAZENECA-2007UW06151

PATIENT
  Age: 12767 Day
  Sex: Male
  Weight: 75 kg

DRUGS (2)
  1. SEROQUEL [Suspect]
     Indication: BIPOLAR DISORDER
     Dosage: 100-200 MG
     Route: 048
  2. TRAZODONE HCL [Concomitant]

REACTIONS (1)
  - PANCREATITIS [None]
